FAERS Safety Report 8811313 (Version 1)
Quarter: 2012Q4

REPORT INFORMATION
  Report Type: 
  Country: US (occurrence: US)
  Receive Date: 20120927
  Receipt Date: 20120927
  Transmission Date: 20130627
  Serious: Yes (Hospitalization)
  Sender: FDA-Public Use
  Company Number: US-ELI_LILLY_AND_COMPANY-US201209004732

PATIENT
  Age: 47 Year
  Sex: Male

DRUGS (6)
  1. CYMBALTA [Suspect]
     Indication: DEPRESSION
     Dosage: 60 mg, qd
  2. CYMBALTA [Suspect]
     Dosage: 30 mg, bid
  3. CYMBALTA [Suspect]
     Dosage: 30 mg, bid
  4. CYMBALTA [Suspect]
     Dosage: 60 mg, qd
  5. CYMBALTA [Suspect]
     Dosage: 60 mg, qd
  6. CYMBALTA [Suspect]
     Dosage: 60 mg, qd

REACTIONS (9)
  - Hospitalisation [Unknown]
  - Adverse event [Unknown]
  - Dizziness [Unknown]
  - Vertigo [Unknown]
  - Tinnitus [Unknown]
  - Paraesthesia [Unknown]
  - Disturbance in attention [Unknown]
  - Mood altered [Unknown]
  - Dyspepsia [Unknown]
